FAERS Safety Report 24125323 (Version 1)
Quarter: 2024Q3

REPORT INFORMATION
  Report Type: Spontaneous
  Country: US (occurrence: None)
  Receive Date: 20240722
  Receipt Date: 20240722
  Transmission Date: 20241017
  Serious: Yes (Hospitalization)
  Sender: Public
  Company Number: None

PATIENT
  Age: 68 Year
  Sex: Female

DRUGS (4)
  1. AMBRISENTAN [Suspect]
     Active Substance: AMBRISENTAN
     Indication: Pulmonary arterial hypertension
     Route: 048
     Dates: start: 20211229
  2. AMBRISENTAN [Concomitant]
     Active Substance: AMBRISENTAN
  3. LETAIRIS [Concomitant]
     Active Substance: AMBRISENTAN
  4. METFORMIN [Concomitant]
     Active Substance: METFORMIN HYDROCHLORIDE

REACTIONS (2)
  - Cardiac failure [None]
  - Therapy interrupted [None]

NARRATIVE: CASE EVENT DATE: 20240621
